FAERS Safety Report 16375188 (Version 1)
Quarter: 2019Q2

REPORT INFORMATION
  Report Type: Spontaneous
  Country: US (occurrence: US)
  Receive Date: 20190531
  Receipt Date: 20190531
  Transmission Date: 20190711
  Serious: No
  Sender: FDA-Public Use
  Company Number: US-GLAXOSMITHKLINE-US2019092154

PATIENT
  Sex: Female

DRUGS (4)
  1. BUPROPION TABLET [Suspect]
     Active Substance: BUPROPION
     Indication: ANXIETY
     Dosage: 250 MG, QD
     Route: 048
     Dates: start: 2017
  2. BUPROPION TABLET [Suspect]
     Active Substance: BUPROPION
     Indication: DEPRESSION
     Dosage: DECREASE BY 50MG EVERY 2 DAYS
     Route: 048
  3. BOTOX [Suspect]
     Active Substance: ONABOTULINUMTOXINA
     Indication: PRODUCT USED FOR UNKNOWN INDICATION
     Dosage: 100 MG, Z
     Dates: end: 2018
  4. AIMOVIG [Suspect]
     Active Substance: ERENUMAB-AOOE
     Indication: PRODUCT USED FOR UNKNOWN INDICATION
     Dosage: UNK

REACTIONS (3)
  - Diplopia [Not Recovered/Not Resolved]
  - Visual impairment [Not Recovered/Not Resolved]
  - Vision blurred [Not Recovered/Not Resolved]
